FAERS Safety Report 9022961 (Version 1)
Quarter: 2013Q1

REPORT INFORMATION
  Report Type: Spontaneous
  Country: US (occurrence: US)
  Receive Date: 20130120
  Receipt Date: 20130120
  Transmission Date: 20140127
  Serious: No
  Sender: FDA-Public Use
  Company Number: US-ALLERGAN-1216179US

PATIENT
  Age: 64 Year
  Sex: Female

DRUGS (1)
  1. BOTOX? [Suspect]
     Indication: HYPERTONIC BLADDER
     Dosage: 100 UNITS, SINGLE
     Route: 030
     Dates: start: 201205, end: 201205

REACTIONS (1)
  - Urinary retention [Not Recovered/Not Resolved]
